FAERS Safety Report 13621300 (Version 4)
Quarter: 2017Q4

REPORT INFORMATION
  Report Type: Spontaneous
  Country: JP (occurrence: JP)
  Receive Date: 20170607
  Receipt Date: 20171122
  Transmission Date: 20180320
  Serious: Yes (Death, Life-Threatening, Hospitalization, Other)
  Sender: FDA-Public Use
  Company Number: PHJP2017JP018439

PATIENT
  Age: 70 Year
  Sex: Male
  Weight: 63.3 kg

DRUGS (7)
  1. XYZAL [Concomitant]
     Active Substance: LEVOCETIRIZINE DIHYDROCHLORIDE
     Indication: PRODUCT USED FOR UNKNOWN INDICATION
     Dosage: 5 MG, UNK
     Route: 048
  2. NEORAL [Suspect]
     Active Substance: CYCLOSPORINE
     Dosage: 50 MG, BID
     Route: 048
     Dates: start: 20170115, end: 20170214
  3. ATARAX-P [Concomitant]
     Active Substance: HYDROXYZINE HYDROCHLORIDE
     Indication: INSOMNIA
     Dosage: 25 MG, QD
     Route: 048
  4. NEORAL [Suspect]
     Active Substance: CYCLOSPORINE
     Indication: DERMATITIS EXFOLIATIVE
     Dosage: 50 MG, QD
     Route: 048
     Dates: start: 20161227, end: 20170114
  5. SINGULAIR [Concomitant]
     Active Substance: MONTELUKAST SODIUM
     Indication: PRODUCT USED FOR UNKNOWN INDICATION
     Dosage: 10 MG, QD
     Route: 048
  6. NEORAL [Suspect]
     Active Substance: CYCLOSPORINE
     Dosage: 100 MG, BID
     Route: 048
     Dates: start: 20170215
  7. PREDONINE [Suspect]
     Active Substance: PREDNISOLONE
     Indication: DERMATITIS EXFOLIATIVE
     Dosage: 15 MG, UNK
     Route: 048

REACTIONS (35)
  - Asthenia [Unknown]
  - Dehydration [Unknown]
  - Hypothermia [Unknown]
  - Pleural effusion [Unknown]
  - Language disorder [Fatal]
  - White blood cell count increased [Fatal]
  - C-reactive protein increased [Fatal]
  - Blood pressure immeasurable [Unknown]
  - Cardiovascular disorder [Unknown]
  - Seizure [Fatal]
  - CSF cell count increased [Fatal]
  - Inflammation [Fatal]
  - Body temperature increased [Fatal]
  - Shock [Recovered/Resolved]
  - Vomiting [Fatal]
  - General physical health deterioration [Fatal]
  - Decreased appetite [Fatal]
  - Depressed level of consciousness [Fatal]
  - Prerenal failure [Recovered/Resolved]
  - Myxoedema coma [Recovering/Resolving]
  - Hypothyroidism [Recovering/Resolving]
  - Ileus paralytic [Not Recovered/Not Resolved]
  - Abdominal distension [Unknown]
  - Product use in unapproved indication [Unknown]
  - Brain abscess [Fatal]
  - CSF glucose decreased [Fatal]
  - Altered state of consciousness [Unknown]
  - Sepsis [Fatal]
  - Azotaemia [Unknown]
  - Urine output decreased [Unknown]
  - Meningitis bacterial [Fatal]
  - CSF protein increased [Fatal]
  - Pyrexia [Fatal]
  - Hypophagia [Fatal]
  - Staphylococcal infection [Not Recovered/Not Resolved]

NARRATIVE: CASE EVENT DATE: 20170215
